FAERS Safety Report 11074096 (Version 5)
Quarter: 2017Q3

REPORT INFORMATION
  Report Type: Spontaneous
  Country: US (occurrence: US)
  Receive Date: 20150429
  Receipt Date: 20170907
  Transmission Date: 20171127
  Serious: Yes (Other)
  Sender: FDA-Public Use
  Company Number: US-ASTRAZENECA-2015SE39397

PATIENT
  Age: 73 Year
  Sex: Male
  Weight: 68 kg

DRUGS (15)
  1. CALCIUM WITH D3 [Concomitant]
     Dosage: 600MG
  2. SYMBICORT [Suspect]
     Active Substance: BUDESONIDE\FORMOTEROL FUMARATE DIHYDRATE
     Indication: CHRONIC OBSTRUCTIVE PULMONARY DISEASE
     Dosage: 160/4.5MCG, ONE PUFF TWICE DAILY
     Route: 055
     Dates: start: 2015, end: 20150426
  3. VITAMIN CENTRUM SILVER [Concomitant]
     Dosage: DAILY
  4. OMEGA XL [Concomitant]
     Active Substance: DIETARY SUPPLEMENT
     Dosage: TWICE DAILY
  5. VITAMINS NOS [Concomitant]
     Active Substance: VITAMINS
     Indication: MACULAR DEGENERATION
     Dosage: BID
  6. VERAPAMIL [Concomitant]
     Active Substance: VERAPAMIL HYDROCHLORIDE
     Indication: BLOOD PRESSURE ABNORMAL
     Route: 048
  7. PRAVASTATIN. [Concomitant]
     Active Substance: PRAVASTATIN
     Indication: BLOOD CHOLESTEROL ABNORMAL
     Route: 048
  8. CENTRUM [Concomitant]
     Active Substance: VITAMINS
     Dosage: 2 TIMES A DAY
  9. HYDROCHLOROTHIAZIDE. [Concomitant]
     Active Substance: HYDROCHLOROTHIAZIDE
     Indication: BLOOD PRESSURE ABNORMAL
     Route: 048
  10. FLUTICASONE PROPIONATE. [Concomitant]
     Active Substance: FLUTICASONE PROPIONATE
     Indication: RHINORRHOEA
     Dosage: 1 SPRAY IN EACH NOSTRIL DAILY
     Route: 045
     Dates: start: 2015
  11. TAMSULOSIN [Concomitant]
     Active Substance: TAMSULOSIN
     Indication: PROSTATOMEGALY
     Route: 048
  12. SYMBICORT [Suspect]
     Active Substance: BUDESONIDE\FORMOTEROL FUMARATE DIHYDRATE
     Indication: CHRONIC OBSTRUCTIVE PULMONARY DISEASE
     Dosage: 160/4.5MCG,2 PUFFS TWICE A DAY
     Route: 055
     Dates: start: 20160525
  13. SYMBICORT [Suspect]
     Active Substance: BUDESONIDE\FORMOTEROL FUMARATE DIHYDRATE
     Indication: CHRONIC OBSTRUCTIVE PULMONARY DISEASE
     Dosage: 160/4.5MCG 1 PUFF BID
     Route: 055
     Dates: start: 2016
  14. SYMBICORT [Suspect]
     Active Substance: BUDESONIDE\FORMOTEROL FUMARATE DIHYDRATE
     Indication: CHRONIC OBSTRUCTIVE PULMONARY DISEASE
     Dosage: 160/4.5MCG, ONE PUFF TWICE DAILY
     Route: 055
     Dates: start: 2014
  15. FISH OIL [Concomitant]
     Active Substance: FISH OIL

REACTIONS (9)
  - Off label use [Unknown]
  - Abdominal pain upper [Unknown]
  - Intentional product misuse [Unknown]
  - Eye haemorrhage [Recovered/Resolved]
  - Wheezing [Recovering/Resolving]
  - Intentional product use issue [Unknown]
  - Gastrooesophageal reflux disease [Unknown]
  - Macular degeneration [Unknown]
  - Cataract [Unknown]

NARRATIVE: CASE EVENT DATE: 2015
